FAERS Safety Report 8533162-5 (Version None)
Quarter: 2012Q3

REPORT INFORMATION
  Report Type: 
  Country: None (occurrence: None)
  Receive Date: 20120724
  Receipt Date: 20120716
  Transmission Date: 20120928
  Serious: No
  Sender: FDA-Public Use
  Company Number: US-B.I. PHARMACEUTICALS,INC./RIDGEFIELD-2012-BP-15799BP

PATIENT
  Sex: Female

DRUGS (7)
  1. CRESTOR [Concomitant]
     Indication: BLOOD CHOLESTEROL INCREASED
     Route: 048
  2. SUPER VITAMIN B 12 [Concomitant]
     Indication: ROUTINE HEALTH MAINTENANCE
     Route: 048
  3. VITAMIN [Concomitant]
     Indication: ROUTINE HEALTH MAINTENANCE
     Route: 048
  4. CELEBREX [Concomitant]
     Indication: ARTHRITIS
     Route: 048
  5. SPIRIVA [Suspect]
     Indication: CHRONIC OBSTRUCTIVE PULMONARY DISEASE
     Dosage: 18 MCG
     Route: 055
     Dates: start: 20120601
  6. VERAPAMIL [Concomitant]
     Indication: HYPERTENSION
     Route: 048
  7. TRAMADOL HYDROCHLORIDE [Concomitant]
     Indication: ARTHRITIS
     Route: 048

REACTIONS (4)
  - SKIN EXFOLIATION [None]
  - JOINT SWELLING [None]
  - RASH [None]
  - OEDEMA PERIPHERAL [None]
